FAERS Safety Report 9225783 (Version 3)
Quarter: 2013Q2

REPORT INFORMATION
  Report Type: Spontaneous
  Country: JP (occurrence: JP)
  Receive Date: 20130411
  Receipt Date: 20130607
  Transmission Date: 20140414
  Serious: Yes (Hospitalization)
  Sender: FDA-Public Use
  Company Number: JP-OTSUKA-JP-2013-10886

PATIENT
  Age: 71 Year
  Sex: Male
  Weight: 95.4 kg

DRUGS (11)
  1. SAMSCA [Suspect]
     Indication: CARDIAC FAILURE CONGESTIVE
     Dosage: 15 MG MILLIGRAM(S), QD
     Route: 048
     Dates: start: 20130202, end: 20130228
  2. LOXONIN [Suspect]
     Indication: NEURALGIA
     Dosage: 60 MG MILLIGRAM(S), TID
     Route: 048
     Dates: start: 20120521, end: 20130228
  3. VOLTAREN [Suspect]
     Indication: COMPRESSION FRACTURE
     Dosage: 50 MG MILLIGRAM(S), BID
     Route: 054
     Dates: start: 20130220, end: 20130226
  4. ALDACTONE A [Concomitant]
     Indication: CARDIAC FAILURE CONGESTIVE
     Dosage: 25 MG MILLIGRAM(S), TID
     Route: 048
     Dates: start: 20120423, end: 20130228
  5. ALDACTONE A [Concomitant]
     Indication: CIRRHOSIS ALCOHOLIC
  6. LASIX [Concomitant]
     Indication: CARDIAC FAILURE CONGESTIVE
     Dosage: 80 MG MILLIGRAM(S), QD
     Route: 048
     Dates: start: 20120423
  7. LASIX [Concomitant]
     Indication: CIRRHOSIS ALCOHOLIC
  8. LYRICA [Concomitant]
     Indication: NEURALGIA
     Dosage: 150 MG MILLIGRAM(S), BID
     Route: 048
     Dates: start: 20120423
  9. LIVACT [Concomitant]
     Indication: CIRRHOSIS ALCOHOLIC
     Dosage: 1 DF DOSAGE FORM, TID
     Route: 048
     Dates: start: 20120423
  10. GLACTIV [Concomitant]
     Indication: TYPE 2 DIABETES MELLITUS
     Dosage: 50 MG MILLIGRAM(S), QD
     Route: 048
     Dates: start: 20120521
  11. ARTIST [Concomitant]
     Indication: CARDIAC FAILURE CONGESTIVE
     Dosage: 10 MG MILLIGRAM(S), QD
     Route: 048
     Dates: start: 20130201

REACTIONS (3)
  - Blood potassium increased [Unknown]
  - Blood urea increased [Unknown]
  - Blood creatinine increased [Unknown]
